FAERS Safety Report 20405506 (Version 2)
Quarter: 2022Q1

REPORT INFORMATION
  Report Type: Spontaneous
  Country: US (occurrence: None)
  Receive Date: 20220131
  Receipt Date: 20220225
  Transmission Date: 20220423
  Serious: No
  Sender: FDA-Public Use
  Company Number: 2022A035428

PATIENT
  Sex: Female

DRUGS (2)
  1. SYMBICORT [Suspect]
     Active Substance: BUDESONIDE\FORMOTEROL FUMARATE DIHYDRATE
     Dosage: 160-4.5 MCG UNKNOWN UNKNOWN
     Route: 055
  2. BYDUREON BCISE [Suspect]
     Active Substance: EXENATIDE
     Dosage: 2 MG IN 0.85 ML
     Route: 058

REACTIONS (5)
  - Foreign body in respiratory tract [Unknown]
  - Choking [Unknown]
  - Device issue [Unknown]
  - Device malfunction [Unknown]
  - Device leakage [Unknown]
